FAERS Safety Report 8611594-4 (Version None)
Quarter: 2012Q3

REPORT INFORMATION
  Report Type: 
  Country: None (occurrence: None)
  Receive Date: 20120822
  Receipt Date: 20120815
  Transmission Date: 20120928
  Serious: Yes (Hospitalization, Other)
  Sender: FDA-Public Use
  Company Number: PHFR2012GB001478

PATIENT
  Sex: Female

DRUGS (30)
  1. ATORVASTATIN [Concomitant]
     Dosage: 1 DF, 21:00HRS
  2. COD-LIVER OIL [Concomitant]
     Dosage: 1 DF, QD(13:00 HRS)
  3. DESMOPRESSIN ACETATE [Concomitant]
     Dosage: 2 DF, (2 TAB 13:00HRS)
  4. ESCITALOPRAM [Concomitant]
     Dosage: 1 DF, QD(1 TAB13:00HRS)
  5. CETIRIZINE HCL [Concomitant]
     Dosage: 1 DF, QD(1 TAB@21:00HRS)
  6. MONTELUKAST [Concomitant]
     Dosage: 1 DF, QD(1TAB@21:00HRS)
  7. PROCYCLIDINE HYDROCHLORIDE 2MG TAB [Concomitant]
     Dosage: 3 DF, PRN(1X3 TIMES A DAY)
  8. DIAZEPAM [Concomitant]
     Dosage: 1 DF, PRN
  9. CLOZARIL [Suspect]
     Dosage: 550 MG, (250 MG AT 1 PM AND 300 MG AT 10PM)
     Route: 048
  10. SULPIRIDE [Concomitant]
     Dosage: 1 TAB 21:00 HRS AND TAB 2 13:00HRS
  11. SULPIRIDE [Concomitant]
     Dosage: 400 MG, 21 TAB AT 18:00HRS AND 2 TAB AT21:00HRS
  12. METFORMIN [Concomitant]
     Dosage: 1 DF, BID(2TAB @08:00HRS)
  13. SIMBICORT TURBUHALER [Concomitant]
     Dosage: 2 DF, BID(2 PUFFS @0800 AND 2 PUFFS @2100)
  14. ACETAMINOPHEN [Concomitant]
     Dosage: 2 DF, Q4H
  15. LACTULOSE [Concomitant]
     Dosage: UNK
  16. OMEPRAZOLE [Concomitant]
     Dosage: 1 DF, QD(1 TAB@13:00HRS)
  17. BECLOMETHASONE DIPROPIONATE [Concomitant]
     Dosage: 2 DF, BID(2 PUFFS @08:00 HRS AND 21:00 HRS0
  18. ZIMOVANE [Concomitant]
     Dosage: 2 DF, QD  21.00 H
  19. VITAMIN B-COMPLEX WITH MINERALS [Concomitant]
     Dosage: 1 DF, QD(1 @13:00 HRS)
  20. TRIHEXYPHENIDYL HCL [Concomitant]
     Dosage: 1 DF, TID(1 @08:00, 13:00 AND21:00)
  21. AMOXICILLIN AND CLAVULANATE POTASSIUM [Concomitant]
  22. GAVISCON [Concomitant]
     Dosage: 15 ML, PRN( UPTO 4 DAILY)
  23. CLOZARIL [Suspect]
     Dosage: UNK
     Route: 048
     Dates: start: 20010701
  24. BISACODYL [Concomitant]
     Dosage: 4 DF, (2 TAB 13:00 AND 2 TAB 18:00HRS)
  25. VALPROATE SODIUM [Concomitant]
     Dosage: 4 DF, BID
  26. SALOMOL [Concomitant]
     Dosage: 6 DF, PRN(UPTO 6 PUFFS WHEN REQUIRED)
  27. MOVIPREP [Concomitant]
     Dosage: UPTO 4 SACHETS WHEN REQUIRED
  28. SENNA [Concomitant]
     Dosage: 2 DF, (1TAB @13:00 AND1 TAB @18:00HRS)
  29. CALCIUM CARBONATE [Concomitant]
     Dosage: 1 DF, BID(1 @08;00HRS AN1AT 21:00HRS)
  30. PREDNISOLONE [Concomitant]
     Dosage: 40 MG, PRN(ADJUSTED AS REQUIRED)

REACTIONS (7)
  - ASTHMA [None]
  - RESPIRATORY DISORDER [None]
  - WHITE BLOOD CELL COUNT INCREASED [None]
  - NEUTROPHIL COUNT INCREASED [None]
  - RESPIRATORY TRACT INFECTION [None]
  - LOWER RESPIRATORY TRACT INFECTION [None]
  - ANTIPSYCHOTIC DRUG LEVEL INCREASED [None]
